FAERS Safety Report 6581435-8 (Version None)
Quarter: 2010Q1

REPORT INFORMATION
  Report Type: 
  Country: None (occurrence: None)
  Receive Date: 20100215
  Receipt Date: 20100203
  Transmission Date: 20100710
  Serious: Yes (Hospitalization)
  Sender: FDA-Public Use
  Company Number: A0841074A

PATIENT
  Age: 80 Year
  Sex: Male

DRUGS (8)
  1. PAZOPANIB [Suspect]
     Indication: METASTATIC RENAL CELL CARCINOMA
     Dosage: 800MG PER DAY
     Route: 048
     Dates: start: 20090827, end: 20100119
  2. COUMADIN [Concomitant]
     Indication: ATRIAL FIBRILLATION
     Dates: start: 19990101
  3. ALLOPURINOL [Concomitant]
  4. DOCUSATE [Concomitant]
  5. HYDRALAZINE [Concomitant]
  6. NORVASC [Concomitant]
  7. IMODIUM [Concomitant]
  8. LOMOTIL [Concomitant]

REACTIONS (2)
  - DIARRHOEA [None]
  - PROTHROMBIN TIME PROLONGED [None]
